FAERS Safety Report 14952860 (Version 1)
Quarter: 2018Q2

REPORT INFORMATION
  Report Type: Spontaneous
  Country: US (occurrence: US)
  Receive Date: 20180530
  Receipt Date: 20180530
  Transmission Date: 20180711
  Serious: No
  Sender: FDA-Public Use
  Company Number: US-BIODELIVERY SCIENCES INTERNATIONAL-2018BDSI0159

PATIENT
  Age: 76 Year
  Sex: Female
  Weight: 61.29 kg

DRUGS (4)
  1. BUPRENORPHINE. [Suspect]
     Active Substance: BUPRENORPHINE
     Dates: start: 20180410, end: 20180417
  2. BUPRENORPHINE. [Suspect]
     Active Substance: BUPRENORPHINE
     Indication: PAIN
     Route: 002
     Dates: start: 20180404, end: 20180409
  3. BUPRENORPHINE. [Suspect]
     Active Substance: BUPRENORPHINE
     Dosage: HALF FILM, TWICE DAILY
     Route: 002
     Dates: start: 20180418
  4. LABETALOL HYDROCHLORIDE. [Concomitant]
     Active Substance: LABETALOL HYDROCHLORIDE
     Indication: HYPERTENSION
     Route: 048

REACTIONS (18)
  - Insomnia [Recovered/Resolved]
  - Product solubility abnormal [Unknown]
  - Suicidal ideation [Unknown]
  - Medication residue present [Unknown]
  - Drug ineffective [Unknown]
  - Mental impairment [Unknown]
  - Feeling jittery [Unknown]
  - Tremor [Not Recovered/Not Resolved]
  - Myalgia [Unknown]
  - Anxiety [Not Recovered/Not Resolved]
  - Confusional state [Unknown]
  - Musculoskeletal pain [Unknown]
  - Product adhesion issue [Unknown]
  - Somnolence [Recovered/Resolved]
  - Musculoskeletal stiffness [Unknown]
  - Agitation [Not Recovered/Not Resolved]
  - Diarrhoea [Recovering/Resolving]
  - Wrong technique in product usage process [Not Recovered/Not Resolved]

NARRATIVE: CASE EVENT DATE: 201804
